FAERS Safety Report 14524797 (Version 3)
Quarter: 2018Q2

REPORT INFORMATION
  Report Type: Report from Study
  Country: IT (occurrence: IT)
  Receive Date: 20180213
  Receipt Date: 20180413
  Transmission Date: 20180711
  Serious: Yes (Hospitalization)
  Sender: FDA-Public Use
  Company Number: IT-AMGEN-ITACT2017193032

PATIENT
  Age: 50 Year
  Sex: Male

DRUGS (10)
  1. LASIX [Concomitant]
     Active Substance: FUROSEMIDE
     Dosage: 1 CAPSULE, QD
  2. CIPROXIN [Concomitant]
     Active Substance: CIPROFLOXACIN
     Dosage: 250 MG, UNK
  3. SETOFILM [Concomitant]
     Active Substance: ONDANSETRON
     Dosage: 8 MG, UNK
  4. CARFILZOMIB [Suspect]
     Active Substance: CARFILZOMIB
     Indication: PLASMA CELL MYELOMA
     Dosage: 68 MG (36 MG/M2), PER CHEMO REGIM
     Route: 042
     Dates: start: 20170207, end: 20171219
  5. CYCLOPHOSPHAMIDE. [Suspect]
     Active Substance: CYCLOPHOSPHAMIDE
     Indication: PLASMA CELL MYELOMA
     Dosage: 550 MG (300 MG/M2), PER CHEMO REGIM
     Route: 048
     Dates: start: 20170207, end: 20171219
  6. ACICLOVIR [Concomitant]
     Active Substance: ACYCLOVIR
     Dosage: 2 CAPSULE, QD
  7. PURSENNID [Concomitant]
     Active Substance: SENNOSIDES A AND B
     Dosage: UNK
  8. DECADRON [Suspect]
     Active Substance: DEXAMETHASONE
     Indication: PLASMA CELL MYELOMA
     Dosage: 20 MG, PER CHEMO REGIM
     Route: 048
     Dates: start: 20170207, end: 20171219
  9. LANSOPRAZOLE. [Concomitant]
     Active Substance: LANSOPRAZOLE
     Dosage: 30 MG, QD
  10. LORAMYC [Concomitant]
     Active Substance: MICONAZOLE
     Dosage: UNK

REACTIONS (1)
  - Pneumonia mycoplasmal [Recovered/Resolved]

NARRATIVE: CASE EVENT DATE: 20171220
